FAERS Safety Report 11143910 (Version 2)
Quarter: 2015Q2

REPORT INFORMATION
  Report Type: Spontaneous
  Country: BR (occurrence: BR)
  Receive Date: 20150526
  Receipt Date: 20150608
  Transmission Date: 20150821
  Serious: Yes (Other)
  Sender: FDA-Public Use
  Company Number: PHHY2015BR063089

PATIENT
  Sex: Male
  Weight: 61 kg

DRUGS (7)
  1. ENTARKIN [Suspect]
     Active Substance: ENTACAPONE
     Indication: PARKINSON^S DISEASE
     Route: 065
  2. PRAMIPEXOLE DIHCL [Concomitant]
     Indication: PARKINSON^S DISEASE
     Dosage: 1 DF, QD
     Route: 048
  3. VENLAFAXINE HYDROCHLORIDE. [Concomitant]
     Active Substance: VENLAFAXINE HYDROCHLORIDE
     Indication: PARKINSON^S DISEASE
     Dosage: 1 DF, QD
     Route: 048
  4. AMANTADINE [Concomitant]
     Active Substance: AMANTADINE
     Indication: PARKINSON^S DISEASE
     Dosage: 1 DF, QD
     Route: 048
  5. PROLOPA [Concomitant]
     Active Substance: BENSERAZIDE\LEVODOPA
     Indication: PARKINSON^S DISEASE
     Dosage: 2 DF, QD
     Route: 048
  6. COMTAN [Suspect]
     Active Substance: ENTACAPONE
     Indication: PARKINSON^S DISEASE
     Dosage: 2 DF, QD
     Route: 048
  7. PROLOPA HBS [Concomitant]
     Indication: PARKINSON^S DISEASE
     Dosage: 1 DF, QD
     Route: 048

REACTIONS (3)
  - Parkinson^s disease [Not Recovered/Not Resolved]
  - Feeling abnormal [Recovered/Resolved]
  - Atrophy [Recovered/Resolved]
